FAERS Safety Report 8061843-9 (Version None)
Quarter: 2012Q1

REPORT INFORMATION
  Report Type: 
  Country: None (occurrence: None)
  Receive Date: 20120123
  Receipt Date: 20120119
  Transmission Date: 20120608
  Serious: No
  Sender: FDA-Public Use
  Company Number: US-PFIZER INC-2012016715

PATIENT
  Sex: Female
  Weight: 53.061 kg

DRUGS (2)
  1. CHANTIX [Suspect]
     Indication: SMOKING CESSATION THERAPY
     Dosage: 0.5 MG, 2X/DAY
     Route: 048
     Dates: start: 20111230
  2. CHANTIX [Suspect]
     Dosage: UNK
     Route: 048

REACTIONS (4)
  - PAIN [None]
  - MALAISE [None]
  - ABDOMINAL PAIN UPPER [None]
  - NAUSEA [None]
